FAERS Safety Report 15660152 (Version 2)
Quarter: 2018Q4

REPORT INFORMATION
  Report Type: Spontaneous
  Country: US (occurrence: US)
  Receive Date: 20181127
  Receipt Date: 20181130
  Transmission Date: 20190205
  Serious: Yes (Hospitalization)
  Sender: FDA-Public Use
  Company Number: US-009507513-1811USA009728

PATIENT
  Age: 78 Year
  Sex: Female
  Weight: 77.6 kg

DRUGS (5)
  1. EPACADOSTAT [Suspect]
     Active Substance: EPACADOSTAT
     Dosage: 100 MILLIGRAM, TWO TIMES A DAY
     Route: 048
     Dates: start: 20180702, end: 20180709
  2. FLUOROURACIL. [Suspect]
     Active Substance: FLUOROURACIL
     Indication: ENDOMETRIAL ADENOCARCINOMA
     Dosage: 1000 MILLIGRAM/SQ. METER, Q3W, ON DAYS 1-4
     Route: 042
     Dates: start: 20180702, end: 20180730
  3. CARBOPLATIN. [Suspect]
     Active Substance: CARBOPLATIN
     Indication: ENDOMETRIAL ADENOCARCINOMA
     Dosage: AUC 5, Q3W
     Route: 042
     Dates: start: 20180702, end: 20180730
  4. EPACADOSTAT [Suspect]
     Active Substance: EPACADOSTAT
     Dosage: UNK
     Route: 048
     Dates: start: 20170730
  5. PEMBROLIZUMAB. [Suspect]
     Active Substance: PEMBROLIZUMAB
     Indication: ENDOMETRIAL ADENOCARCINOMA
     Dosage: 200 MILLIGRAM, Q3W
     Route: 042
     Dates: start: 20180702, end: 20180730

REACTIONS (6)
  - Anaemia [Unknown]
  - Febrile neutropenia [Recovered/Resolved]
  - Stomatitis [Recovered/Resolved]
  - Abdominal pain [Recovered/Resolved]
  - Diarrhoea [Recovered/Resolved]
  - Off label use [Unknown]

NARRATIVE: CASE EVENT DATE: 20180709
